FAERS Safety Report 19278086 (Version 1)
Quarter: 2021Q2

REPORT INFORMATION
  Report Type: Spontaneous
  Country: GB (occurrence: GB)
  Receive Date: 20210520
  Receipt Date: 20210520
  Transmission Date: 20210717
  Serious: Yes (Hospitalization)
  Sender: FDA-Public Use
  Company Number: GB-JNJFOC-20210527710

PATIENT
  Age: 40 Year
  Sex: Female
  Weight: 76.55 kg

DRUGS (16)
  1. RISPERDAL CONSTA [Suspect]
     Active Substance: RISPERIDONE
  2. CODEINE [Concomitant]
     Active Substance: CODEINE
     Dates: start: 20201217
  3. PROCYCLIDINE [Concomitant]
     Active Substance: PROCYCLIDINE
     Dosage: MORNING
     Dates: start: 20201217
  4. RISPERDAL CONSTA [Suspect]
     Active Substance: RISPERIDONE
  5. ASPRIN [Concomitant]
     Active Substance: ASPIRIN
     Dosage: MORNING
     Dates: start: 20210322, end: 20210428
  6. PREGABALIN. [Concomitant]
     Active Substance: PREGABALIN
     Dates: start: 20201217
  7. RAMIPRIL. [Concomitant]
     Active Substance: RAMIPRIL
     Dates: start: 20200828
  8. SENNA [SENNA ALEXANDRINA] [Concomitant]
     Active Substance: SENNA LEAF
     Dosage: NIGHT
     Dates: start: 20201229
  9. RISPERDAL CONSTA [Suspect]
     Active Substance: RISPERIDONE
     Indication: BIPOLAR DISORDER
     Route: 030
     Dates: start: 20201103, end: 20210429
  10. BISOPROLOL [Concomitant]
     Active Substance: BISOPROLOL
     Dosage: MORNING
     Dates: start: 20200824
  11. LANSOPRAZOLE. [Concomitant]
     Active Substance: LANSOPRAZOLE
     Dosage: MORNING
     Dates: start: 20210310
  12. AMITRIPTYLINE [Concomitant]
     Active Substance: AMITRIPTYLINE
     Dosage: NIGHT
     Dates: start: 20201217
  13. ATORVASTATIN [Concomitant]
     Active Substance: ATORVASTATIN
     Dosage: NIGHT
     Dates: start: 20200824
  14. GLYCEROL [Concomitant]
     Active Substance: GLYCERIN
     Indication: CONSTIPATION
     Dosage: 1?2 AS NEEDED
     Dates: start: 20201229
  15. RISPERDAL CONSTA [Suspect]
     Active Substance: RISPERIDONE
  16. LAXIDO [Concomitant]
     Active Substance: POLYETHYLENE GLYCOL 3350\POTASSIUM CHLORIDE\SODIUM BICARBONATE\SODIUM CHLORIDE
     Dosage: 1?2 SACHETS TWICE DAILY
     Dates: start: 20201229

REACTIONS (1)
  - Pulmonary embolism [Not Recovered/Not Resolved]

NARRATIVE: CASE EVENT DATE: 20210425
